FAERS Safety Report 17911698 (Version 1)
Quarter: 2020Q2

REPORT INFORMATION
  Report Type: Spontaneous
  Country: US (occurrence: US)
  Receive Date: 20200618
  Receipt Date: 20200618
  Transmission Date: 20200714
  Serious: No
  Sender: FDA-Public Use
  Company Number: US-PFIZER INC-2017432926

PATIENT
  Age: 57 Year
  Sex: Female

DRUGS (35)
  1. ZYRTEC [Concomitant]
     Active Substance: CETIRIZINE HYDROCHLORIDE
     Indication: RHINITIS ALLERGIC
     Dosage: 10 MG, 1X/DAY (TAKE 1 TABLET AT BEDTIME.)
  2. FLEXERIL [Concomitant]
     Active Substance: CYCLOBENZAPRINE HYDROCHLORIDE
     Indication: ARTHRITIS
     Dosage: 10 MG, AS NEEDED(1 TABLET 3 TIMES A DAY)
     Route: 048
  3. ACETAMINOPHEN;HYDROCODONE [Concomitant]
     Active Substance: ACETAMINOPHEN\HYDROCODONE
     Indication: ROTATOR CUFF SYNDROME
  4. DIPHENOXYLATE HCL + ATROPINE SULFATE [Concomitant]
     Active Substance: ATROPINE SULFATE\DIPHENOXYLATE HYDROCHLORIDE
     Indication: DIARRHOEA
     Dosage: 1 DF, AS NEEDED (ATROPINE SULFATE 0.025 MG + DIPHENOXYLATE HYDROCHLORIDE 2.5 MG) EVERY 1 TO 2 HOURS
     Route: 048
     Dates: start: 20121109
  5. MAGNESIUM OXIDE. [Concomitant]
     Active Substance: MAGNESIUM OXIDE
     Indication: ROUTINE HEALTH MAINTENANCE
     Dosage: 250 MG, DAILY
     Route: 048
  6. ZINC. [Concomitant]
     Active Substance: ZINC
     Indication: ROUTINE HEALTH MAINTENANCE
     Dosage: 50 MG, DAILY
     Route: 048
  7. AMOXICILLIN E [Concomitant]
     Active Substance: AMOXICILLIN
     Indication: SINUSITIS
     Dosage: 875 MG, 2X/DAY
     Route: 048
     Dates: start: 20161208
  8. CEFDINIR. [Concomitant]
     Active Substance: CEFDINIR
     Indication: SINUSITIS
     Dosage: 300 MG, 2X/DAY (EVERY 12 HOURS DAILY)
     Route: 048
     Dates: start: 20160301
  9. FELDENE [Concomitant]
     Active Substance: PIROXICAM
     Indication: ARTHRITIS
     Dosage: 20 MG, AS NEEDED (DAILY)
     Route: 048
  10. GABAPENTIN. [Concomitant]
     Active Substance: GABAPENTIN
     Indication: FIBROMYALGIA
     Dosage: 800 MG, 3X/DAY
     Route: 048
  11. NORVASC [Concomitant]
     Active Substance: AMLODIPINE BESYLATE
     Indication: HYPERTENSION
     Dosage: 5 MG, DAILY
     Route: 048
     Dates: start: 20101221
  12. RELPAX [Suspect]
     Active Substance: ELETRIPTAN HYDROBROMIDE
     Indication: MIGRAINE
     Dosage: 40 MG, DAILY PM
     Route: 048
  13. BUTALBITAL APAP CAFFEINE [Concomitant]
     Active Substance: ACETAMINOPHEN\BUTALBITAL\CAFFEINE
     Indication: HEADACHE
     Dosage: UNK, 3X/DAY (BUTALBITAL 50 MG+ CAFFEINE 40 MG +PARACETAMOL 325 MG)
     Route: 048
     Dates: start: 20130225
  14. AMBIEN [Concomitant]
     Active Substance: ZOLPIDEM TARTRATE
     Indication: INSOMNIA
     Dosage: 10 MG, AS NEEDED(AT BEDTIME AS NEEDED FOR INSOMNIA)
     Route: 048
     Dates: start: 20120504
  15. RELPAX [Suspect]
     Active Substance: ELETRIPTAN HYDROBROMIDE
     Indication: HEADACHE
  16. FLUTICASONE PROPIONATE. [Concomitant]
     Active Substance: FLUTICASONE PROPIONATE
     Indication: RHINITIS ALLERGIC
     Dosage: 200 UG, 1X/DAY (2 SPRAYS IN EACH NOSTRIL ONCE DAILY)
     Route: 045
     Dates: start: 20101221
  17. ACETAMINOPHEN;HYDROCODONE [Concomitant]
     Active Substance: ACETAMINOPHEN\HYDROCODONE
     Indication: CERVICAL RADICULOPATHY
     Dosage: 1 DF, AS NEEDED (HYDROCODONE 10 MG+ PARACETAMOL 325 MG)
     Route: 048
     Dates: start: 20130429
  18. ACETAMINOPHEN;HYDROCODONE [Concomitant]
     Active Substance: ACETAMINOPHEN\HYDROCODONE
     Indication: FIBROMYALGIA
  19. DIPHENOXYLATE HCL + ATROPINE SULFATE [Concomitant]
     Active Substance: ATROPINE SULFATE\DIPHENOXYLATE HYDROCHLORIDE
     Indication: IRRITABLE BOWEL SYNDROME
  20. FUROSEMIDE. [Concomitant]
     Active Substance: FUROSEMIDE
     Indication: OEDEMA
     Dosage: 20 MG, DAILY
     Route: 048
     Dates: start: 20100316
  21. BUTALBITAL APAP CAFFEINE [Concomitant]
     Active Substance: ACETAMINOPHEN\BUTALBITAL\CAFFEINE
     Indication: MIGRAINE
  22. METOPROLOL TARTRATE. [Concomitant]
     Active Substance: METOPROLOL TARTRATE
     Indication: HYPERTENSION
     Dosage: 50 MG, 2X/DAY
     Route: 048
     Dates: start: 20100405
  23. TOPICORT [Concomitant]
     Active Substance: DESOXIMETASONE
     Indication: SKIN REACTION
  24. VITAMIN D3 [Concomitant]
     Active Substance: CHOLECALCIFEROL
     Indication: VITAMIN D DEFICIENCY
     Dosage: 5000 IU, DAILY
     Route: 048
     Dates: start: 20121214
  25. AZELASTINE HCL [Concomitant]
     Active Substance: AZELASTINE HYDROCHLORIDE
     Indication: RHINITIS ALLERGIC
     Dosage: 4 DF, 1X/DAY (INSTILL 2 SPRAYS IN EACH NOSTRIL ONCE DAILY)
     Route: 045
     Dates: start: 20130531
  26. ZOLOFT [Concomitant]
     Active Substance: SERTRALINE HYDROCHLORIDE
     Indication: DEPRESSION
     Dosage: 100 MG, DAILY
     Route: 048
  27. OMEPRAZOLE. [Concomitant]
     Active Substance: OMEPRAZOLE
     Indication: GASTROOESOPHAGEAL REFLUX DISEASE
     Dosage: 40 MG, DAILY (30 MINUTES BEFORE BREAKFAST)
     Route: 048
     Dates: start: 20141113
  28. CALCIUM 600 + D [Concomitant]
     Active Substance: CALCIUM\VITAMIN D
     Indication: OSTEOPENIA
     Dosage: 1 DF, 2X/DAY
  29. TAMSULOSIN HCL [Concomitant]
     Active Substance: TAMSULOSIN HYDROCHLORIDE
     Dosage: 0.4 MG, DAILY (TAKE 1 CAPSULE DAILY AFTER EVENING MEAL)
     Route: 048
     Dates: start: 20160105
  30. FELDENE [Concomitant]
     Active Substance: PIROXICAM
     Indication: PAIN
  31. VITAMIN C [Concomitant]
     Active Substance: ASCORBIC ACID
     Indication: ROUTINE HEALTH MAINTENANCE
     Dosage: 1 DF, DAILY
  32. ATORVASTATIN CALCIUM. [Concomitant]
     Active Substance: ATORVASTATIN CALCIUM
     Indication: TYPE V HYPERLIPIDAEMIA
     Dosage: 40 MG, DAILY
     Route: 048
     Dates: start: 20141021
  33. FLEXERIL [Concomitant]
     Active Substance: CYCLOBENZAPRINE HYDROCHLORIDE
     Indication: FIBROMYALGIA
  34. DEXILANT [Concomitant]
     Active Substance: DEXLANSOPRAZOLE
     Indication: GASTROOESOPHAGEAL REFLUX DISEASE
     Dosage: 60 MG, DAILY (DAILY 30 MINUTES PRIOR TO EATING)
     Route: 048
  35. TOPICORT [Concomitant]
     Active Substance: DESOXIMETASONE
     Indication: RASH
     Dosage: UNK UNK, 2X/DAY (APPLY TO AFFECTED AREA)
     Dates: start: 20140617

REACTIONS (1)
  - Bronchitis [Unknown]
